FAERS Safety Report 12867591 (Version 1)
Quarter: 2016Q4

REPORT INFORMATION
  Report Type: Spontaneous
  Country: GB (occurrence: GB)
  Receive Date: 20161020
  Receipt Date: 20161020
  Transmission Date: 20170207
  Serious: Yes (Hospitalization, Other)
  Sender: FDA-Public Use
  Company Number: GB-TEVA-703336ACC

PATIENT
  Sex: Female
  Weight: 19.05 kg

DRUGS (5)
  1. MIRTAZAPINE. [Concomitant]
     Active Substance: MIRTAZAPINE
  2. SERTRALINE [Concomitant]
     Active Substance: SERTRALINE HYDROCHLORIDE
  3. THEOPHYLLINE [Concomitant]
     Active Substance: THEOPHYLLINE ANHYDROUS
     Indication: GASTRIC ULCER
  4. LAMOTRIGINE. [Concomitant]
     Active Substance: LAMOTRIGINE
  5. DIAZEPAM. [Suspect]
     Active Substance: DIAZEPAM
     Indication: ANXIETY
     Dates: start: 20160926

REACTIONS (9)
  - Amnesia [Recovering/Resolving]
  - Fatigue [Recovering/Resolving]
  - Hepatic enzyme increased [Recovering/Resolving]
  - Hangover [Recovering/Resolving]
  - Urinary retention [Recovering/Resolving]
  - Clumsiness [Recovering/Resolving]
  - Urinary incontinence [Recovering/Resolving]
  - Visual impairment [Recovering/Resolving]
  - Gastrointestinal disorder [Recovering/Resolving]

NARRATIVE: CASE EVENT DATE: 20160926
